FAERS Safety Report 6832093-6 (Version None)
Quarter: 2010Q3

REPORT INFORMATION
  Report Type: 
  Country: None (occurrence: None)
  Receive Date: 20100712
  Receipt Date: 20100707
  Transmission Date: 20110219
  Serious: Yes (Hospitalization)
  Sender: FDA-Public Use
  Company Number: JP-ROCHE-714041

PATIENT
  Age: 76 Year
  Sex: Female

DRUGS (2)
  1. ROCEPHIN [Suspect]
     Indication: PRODUCT USED FOR UNKNOWN INDICATION
     Dosage: DOSAGE IS UNCERTAIN.
     Route: 042
  2. ANTIDIABETIC DRUG NOS [Suspect]
     Indication: PRODUCT USED FOR UNKNOWN INDICATION
     Dosage: DRUG NAME: ANTIDIABETIC AGENT.  OTHER SUSPECT DRUG IS REPORTED AS ^OTHER CARDIOVASCULAR AGENT^
     Route: 065

REACTIONS (1)
  - SHOCK [None]
